FAERS Safety Report 24461687 (Version 1)
Quarter: 2024Q4

REPORT INFORMATION
  Report Type: Spontaneous
  Country: US (occurrence: US)
  Receive Date: 20241018
  Receipt Date: 20241018
  Transmission Date: 20250114
  Serious: No
  Sender: UCB
  Company Number: US-UCBSA-2024035925

PATIENT
  Sex: Female
  Weight: 81.633 kg

DRUGS (2)
  1. BIMZELX [Suspect]
     Active Substance: BIMEKIZUMAB-BKZX
     Indication: Psoriasis
     Dosage: 320 MILLIGRAM, EV 8 WEEKS
     Route: 058
  2. MACA ROOT [Concomitant]
     Indication: Product used for unknown indication
     Dosage: UNK
     Dates: start: 20240607

REACTIONS (1)
  - Seasonal allergy [Unknown]
